FAERS Safety Report 11984698 (Version 2)
Quarter: 2016Q1

REPORT INFORMATION
  Report Type: Spontaneous
  Country: JP (occurrence: JP)
  Receive Date: 20160201
  Receipt Date: 20160203
  Transmission Date: 20160526
  Serious: Yes (Other)
  Sender: FDA-Public Use
  Company Number: JP-FERRINGPH-2016FE00316

PATIENT

DRUGS (4)
  1. LUTORAL [Concomitant]
     Active Substance: CHLORMADINONE ACETATE\MESTRANOL
     Indication: PREGNANCY
     Dosage: UNK
     Route: 048
     Dates: start: 20150709, end: 20150813
  2. ESTRANA [Concomitant]
     Active Substance: ESTRADIOL
     Indication: PREGNANCY
     Dosage: UNK
     Route: 062
     Dates: start: 20150627, end: 20150817
  3. LUTINUS [Suspect]
     Active Substance: PROGESTERONE
     Indication: ASSISTED FERTILISATION
     Dosage: 400 MG, DAILY
     Dates: start: 20150709, end: 20150817
  4. LUTINUS [Suspect]
     Active Substance: PROGESTERONE
     Dosage: 100 MG, DAILY
     Dates: start: 20150818, end: 20150818

REACTIONS (1)
  - Abortion spontaneous [Recovered/Resolved]

NARRATIVE: CASE EVENT DATE: 20150814
